FAERS Safety Report 12776862 (Version 1)
Quarter: 2016Q3

REPORT INFORMATION
  Report Type: Spontaneous
  Country: ES (occurrence: ES)
  Receive Date: 20160923
  Receipt Date: 20160923
  Transmission Date: 20161109
  Serious: Yes (Other)
  Sender: FDA-Public Use
  Company Number: ES-TEVA-694189ISR

PATIENT
  Age: 16 Year
  Sex: Female

DRUGS (16)
  1. LIPOSOMAL DOXORUBICIN [Suspect]
     Active Substance: DOXORUBICIN HYDROCHLORIDE
     Dosage: 50 MG/M2 ON DAY 1, EVERY 21 DAYS
     Route: 050
     Dates: start: 201203
  2. CAPECITABINE. [Suspect]
     Active Substance: CAPECITABINE
     Indication: ADRENOCORTICAL CARCINOMA
     Dosage: 800 MG
     Route: 065
     Dates: start: 201206
  3. FILGRASTIM [Suspect]
     Active Substance: FILGRASTIM
     Indication: ADRENOCORTICAL CARCINOMA
     Dosage: 300 MCG, 5 DAYS
     Route: 065
  4. CISPLATIN. [Suspect]
     Active Substance: CISPLATIN
     Dosage: 100 MG/M2 ON DAY 1; EVERY 21 DAYS
     Route: 065
  5. SORAFENIB [Suspect]
     Active Substance: SORAFENIB
     Indication: ADRENOCORTICAL CARCINOMA
     Dosage: 800 MILLIGRAM DAILY; 400 MG/12HR
     Route: 065
     Dates: end: 201010
  6. IFOSFAMIDE. [Suspect]
     Active Substance: IFOSFAMIDE
     Indication: ADRENOCORTICAL CARCINOMA
     Dosage: 2000 MG/M2; EVERY 21 DAYS
     Route: 065
     Dates: start: 201012
  7. DOXORUBICIN [Suspect]
     Active Substance: DOXORUBICIN
     Indication: ADRENOCORTICAL CARCINOMA
     Dosage: 50 MG/M2 ON DAY 1, EVERY 21 DAYS
     Route: 065
     Dates: start: 200909
  8. MITOTANE [Suspect]
     Active Substance: MITOTANE
     Dosage: 7 G/DAY; THE DOSE WAS REDUCED TO 3 G/DAY
     Route: 065
  9. MESNA. [Concomitant]
     Active Substance: MESNA
     Indication: ADRENOCORTICAL CARCINOMA
     Dosage: 2000 MG/M2 ON DAYS 1-3
     Route: 065
     Dates: start: 201012
  10. ETOPOSIDE. [Suspect]
     Active Substance: ETOPOSIDE
     Indication: ADRENOCORTICAL CARCINOMA
     Dosage: 100 MG/M2 ON DAYS 1, 2 ,3, EVERY 21 DAYS
     Route: 065
  11. GEMCITABINE [Suspect]
     Active Substance: GEMCITABINE\GEMCITABINE HYDROCHLORIDE
     Indication: ADRENOCORTICAL CARCINOMA
     Route: 065
     Dates: start: 201206
  12. CISPLATIN. [Suspect]
     Active Substance: CISPLATIN
     Indication: ADRENOCORTICAL CARCINOMA
     Dosage: 50 MG/M2 ON DAY 1; EVERY 21 DAYS
     Route: 065
     Dates: start: 200909
  13. HYDROCORTISONE. [Suspect]
     Active Substance: HYDROCORTISONE
     Indication: ADRENOCORTICAL CARCINOMA
     Dosage: 50 MILLIGRAM DAILY; 50 MG/DAY
     Route: 065
     Dates: start: 200908
  14. LIPOSOMAL DOXORUBICIN [Suspect]
     Active Substance: DOXORUBICIN HYDROCHLORIDE
     Indication: ADRENOCORTICAL CARCINOMA
     Dosage: 20 MG/M2 ON DAY 1, EVERY 21 DAYS
     Route: 050
     Dates: start: 201012
  15. MITOTANE [Suspect]
     Active Substance: MITOTANE
     Indication: ADRENOCORTICAL CARCINOMA
     Dosage: 500 MG/12 HOUR; THE DOSE WAS CHANGED TO 7 G/DAY
     Route: 065
  16. MITOTANE [Suspect]
     Active Substance: MITOTANE
     Dosage: 3 G/DAY
     Route: 065
     Dates: start: 200908

REACTIONS (11)
  - Diarrhoea [Unknown]
  - Mucosal inflammation [Unknown]
  - Blood creatinine abnormal [Unknown]
  - Hypercholesterolaemia [Unknown]
  - Dermatitis exfoliative [Unknown]
  - Hyperadrenocorticism [Unknown]
  - Pancytopenia [Unknown]
  - Hepatotoxicity [Unknown]
  - Cystitis haemorrhagic [Unknown]
  - Gastroenteritis [Unknown]
  - Pyrexia [Unknown]
